FAERS Safety Report 23702387 (Version 1)
Quarter: 2024Q2

REPORT INFORMATION
  Report Type: Spontaneous
  Country: US (occurrence: US)
  Receive Date: 20240403
  Receipt Date: 20240403
  Transmission Date: 20240715
  Serious: Yes (Hospitalization)
  Sender: FDA-Public Use
  Company Number: US-SA-SAC20240402000378

PATIENT
  Age: 8 Year
  Sex: Male

DRUGS (13)
  1. DUPIXENT [Suspect]
     Active Substance: DUPILUMAB
     Indication: Dermatitis atopic
     Dosage: 300 MG, Q4W
     Route: 058
     Dates: start: 20220830
  2. ALBUTEROL [Concomitant]
     Active Substance: ALBUTEROL
  3. BENADRYL [Concomitant]
     Active Substance: DIPHENHYDRAMINE HYDROCHLORIDE
  4. EPIPEN [Concomitant]
     Active Substance: EPINEPHRINE
  5. FLOVENT [Concomitant]
     Active Substance: FLUTICASONE PROPIONATE
  6. FLUOCINOLONE ACET [Concomitant]
  7. HUMIRA [Concomitant]
     Active Substance: ADALIMUMAB
  8. RINVOQ [Concomitant]
     Active Substance: UPADACITINIB
  9. RISPERIDONE [Concomitant]
     Active Substance: RISPERIDONE
  10. STELARA [Concomitant]
     Active Substance: USTEKINUMAB
  11. TACROLIMUS [Concomitant]
     Active Substance: TACROLIMUS
  12. ZYRTEC [Concomitant]
     Active Substance: CETIRIZINE HYDROCHLORIDE
  13. BETAMETH [BETAMETHASONE VALERATE] [Concomitant]

REACTIONS (2)
  - Pain in extremity [Unknown]
  - Herpes zoster [Unknown]
